FAERS Safety Report 5371167-6 (Version None)
Quarter: 2007Q2

REPORT INFORMATION
  Report Type: 
  Country: None (occurrence: None)
  Receive Date: 20070622
  Receipt Date: 20070611
  Transmission Date: 20071010
  Serious: Yes (Other)
  Sender: FDA-Public Use
  Company Number: 157445ISR

PATIENT
  Age: 53 Year
  Sex: Male

DRUGS (2)
  1. CITALOPRAM HYDROBROMIDE [Suspect]
     Dosage: SEE IMAGE
     Route: 048
     Dates: start: 20060501, end: 20061201
  2. CITALOPRAM HYDROBROMIDE [Suspect]
     Dosage: SEE IMAGE
     Route: 048
     Dates: start: 20061201, end: 20070101

REACTIONS (2)
  - AGGRESSION [None]
  - NIGHTMARE [None]
